FAERS Safety Report 12141086 (Version 2)
Quarter: 2017Q1

REPORT INFORMATION
  Report Type: Spontaneous
  Country: US (occurrence: US)
  Receive Date: 20160303
  Receipt Date: 20170117
  Transmission Date: 20170428
  Serious: Yes (Other)
  Sender: FDA-Public Use
  Company Number: US-ELI_LILLY_AND_COMPANY-US201602009327

PATIENT
  Sex: Male

DRUGS (2)
  1. CYMBALTA [Suspect]
     Active Substance: DULOXETINE HYDROCHLORIDE
     Indication: DEPRESSION
  2. CYMBALTA [Suspect]
     Active Substance: DULOXETINE HYDROCHLORIDE
     Indication: PAIN
     Dosage: UNK, UNKNOWN
     Route: 065
     Dates: start: 20080105

REACTIONS (10)
  - Memory impairment [Unknown]
  - Paraesthesia [Unknown]
  - Disturbance in attention [Unknown]
  - Irritability [Unknown]
  - Dizziness [Unknown]
  - Influenza like illness [Unknown]
  - Withdrawal syndrome [Unknown]
  - Fatigue [Unknown]
  - Agitation [Unknown]
  - Confusional state [Unknown]
